FAERS Safety Report 15150732 (Version 3)
Quarter: 2018Q3

REPORT INFORMATION
  Report Type: Report from Study
  Country: HU (occurrence: HU)
  Receive Date: 20180716
  Receipt Date: 20180913
  Transmission Date: 20181010
  Serious: Yes (Hospitalization, Other)
  Sender: FDA-Public Use
  Company Number: HU-BAYER-2018-129440

PATIENT
  Sex: Male
  Weight: 64 kg

DRUGS (5)
  1. BETALOC [Concomitant]
     Active Substance: METOPROLOL TARTRATE
     Dosage: 2X1 TABLET DAILY
  2. STIVARGA [Suspect]
     Active Substance: REGORAFENIB
     Indication: COLORECTAL CANCER METASTATIC
     Dosage: DAILY DOSE 160 MG
     Route: 048
     Dates: start: 20180703, end: 201807
  3. BETALOC [Concomitant]
     Active Substance: METOPROLOL TARTRATE
     Dosage: 1.5 + 1 TABLET
  4. FUROSEMID [Concomitant]
     Active Substance: FUROSEMIDE
     Dosage: UNK
  5. POTASSIUM [Concomitant]
     Active Substance: POTASSIUM
     Dosage: 2 TABLET

REACTIONS (8)
  - Cardiac discomfort [Not Recovered/Not Resolved]
  - Dyspnoea exertional [Not Recovered/Not Resolved]
  - Ejection fraction decreased [Recovered/Resolved]
  - Cardiac failure [Recovered/Resolved]
  - Dyspnoea [Recovered/Resolved]
  - Peripheral swelling [Recovered/Resolved]
  - Exercise tolerance decreased [Recovered/Resolved]
  - Polyuria [None]

NARRATIVE: CASE EVENT DATE: 20180706
